FAERS Safety Report 6356898-3 (Version None)
Quarter: 2009Q3

REPORT INFORMATION
  Report Type: 
  Country: None (occurrence: None)
  Receive Date: 20090910
  Receipt Date: 20090910
  Transmission Date: 20100115
  Serious: Yes (Disabling)
  Sender: FDA-Public Use
  Company Number: None

PATIENT
  Age: 32 Year
  Sex: Male
  Weight: 109 kg

DRUGS (2)
  1. DEPACON [Suspect]
     Dosage: BOLUS: 15MG/KG. 1635MG/100
     Dates: start: 20090827, end: 20090827
  2. DEPACON [Suspect]
     Dosage: MAINT : 1000MG/250ML
     Dates: start: 20090827, end: 20090827

REACTIONS (4)
  - ACIDOSIS [None]
  - BLOOD PRESSURE ABNORMAL [None]
  - HAEMODYNAMIC INSTABILITY [None]
  - VENTRICULAR FIBRILLATION [None]
